FAERS Safety Report 21632245 (Version 3)
Quarter: 2025Q4

REPORT INFORMATION
  Report Type: Report from Study
  Country: US (occurrence: US)
  Receive Date: 20221123
  Receipt Date: 20251222
  Transmission Date: 20260118
  Serious: Yes (Hospitalization)
  Sender: ABBVIE
  Company Number: US-ABBVIE-22K-163-4401528-00

PATIENT
  Age: 88 Year
  Sex: Female
  Weight: 72.575 kg

DRUGS (2)
  1. CREON [Suspect]
     Active Substance: PANCRELIPASE AMYLASE\PANCRELIPASE LIPASE\PANCRELIPASE PROTEASE
     Indication: Pancreatic failure
     Dosage: FORM STRENGTH: 36000 IU (INTERNATIONAL UNIT)? FREQUENCY TEXT: 2 PER MEAL AND 1 PER SNACK
     Route: 048
     Dates: start: 20211225
  2. CREON [Suspect]
     Active Substance: PANCRELIPASE AMYLASE\PANCRELIPASE LIPASE\PANCRELIPASE PROTEASE
     Indication: Pancreatic failure
     Dosage: FORM STRENGTH: 36000 IU (INTERNATIONAL UNIT)? FREQUENCY TEXT: 2 PER MEAL AND 1 PER SNACK
     Route: 048

REACTIONS (6)
  - Nephrolithiasis [Recovering/Resolving]
  - Diarrhoea [Recovered/Resolved]
  - Muscular weakness [Unknown]
  - Illness [Unknown]
  - Fall [Unknown]
  - Mobility decreased [Unknown]

NARRATIVE: CASE EVENT DATE: 20220514
